FAERS Safety Report 5206795-1 (Version None)
Quarter: 2006Q4

REPORT INFORMATION
  Report Type: 
  Country: None (occurrence: None)
  Receive Date: 20061026
  Receipt Date: 20060908
  Transmission Date: 20070319
  Serious: No
  Sender: FDA-Public Use
  Company Number: 2006109448

PATIENT
  Age: 63 Year
  Sex: Female
  Weight: 56.246 kg

DRUGS (8)
  1. LYRICA [Suspect]
     Indication: INTERVERTEBRAL DISC PROTRUSION
     Dosage: 75 MG (75 MG, 1 IN 1 D)
     Dates: start: 20060906
  2. LYRICA [Suspect]
     Indication: NEUROPATHY
     Dosage: 75 MG (75 MG, 1 IN 1 D)
     Dates: start: 20060906
  3. DARVOCET [Suspect]
     Indication: INTERVERTEBRAL DISC PROTRUSION
     Dosage: 1D
     Dates: start: 20060906, end: 20060907
  4. DARVOCET [Suspect]
     Indication: NEUROPATHY
     Dosage: 1D
     Dates: start: 20060906, end: 20060907
  5. PROTONIX [Concomitant]
  6. VYTORIN [Concomitant]
  7. ASPIRIN [Concomitant]
  8. QUININE SULFATE [Concomitant]

REACTIONS (8)
  - DRY MOUTH [None]
  - FEELING ABNORMAL [None]
  - HEART RATE INCREASED [None]
  - MALAISE [None]
  - MUSCLE TWITCHING [None]
  - NAUSEA [None]
  - RESTLESSNESS [None]
  - SEDATION [None]
